FAERS Safety Report 25983487 (Version 1)
Quarter: 2025Q4

REPORT INFORMATION
  Report Type: Spontaneous
  Country: EU (occurrence: EU)
  Receive Date: 20251031
  Receipt Date: 20251031
  Transmission Date: 20260118
  Serious: Yes (Hospitalization)
  Sender: RANBAXY
  Company Number: EU-AEMPS-1720733

PATIENT
  Age: 23 Year
  Sex: Female
  Weight: 68 kg

DRUGS (5)
  1. OLANZAPINE [Suspect]
     Active Substance: OLANZAPINE
     Indication: Psychotic disorder
     Dosage: 5 MILLIGRAM, QD
     Route: 048
     Dates: start: 20241217, end: 20250629
  2. ACETAMINOPHEN [Suspect]
     Active Substance: ACETAMINOPHEN
     Indication: Pain
     Dosage: 1 GRAM, TID, 1000MG EVERY 8 HOURS, TAKE 3 DOSES
     Route: 048
     Dates: start: 202505, end: 20250629
  3. CARIPRAZINE [Suspect]
     Active Substance: CARIPRAZINE
     Indication: Psychotic disorder
     Dosage: 6 MG HARD CAPSULES, 28 CAPSULES
     Route: 048
     Dates: start: 20200219, end: 20240915
  4. CARIPRAZINE [Suspect]
     Active Substance: CARIPRAZINE
     Route: 048
     Dates: start: 20241223, end: 20250629
  5. PROGESTERONE [Concomitant]
     Active Substance: PROGESTERONE
     Indication: Amenorrhoea
     Dosage: 100 MILLIGRAM, QD, 100MG PER DAY.
     Route: 048
     Dates: start: 20240216

REACTIONS (3)
  - Hepatic cytolysis [Recovering/Resolving]
  - Abdominal pain upper [Recovered/Resolved]
  - Hyperbilirubinaemia [Recovering/Resolving]

NARRATIVE: CASE EVENT DATE: 20250626
